FAERS Safety Report 5620661-9 (Version None)
Quarter: 2008Q1

REPORT INFORMATION
  Report Type: 
  Country: None (occurrence: None)
  Receive Date: 20080208
  Receipt Date: 20080130
  Transmission Date: 20080703
  Serious: Yes (Death, Hospitalization)
  Sender: FDA-Public Use
  Company Number: DE-ABBOTT-07P-062-0377546-00

PATIENT
  Sex: Male
  Weight: 64.5 kg

DRUGS (13)
  1. HUMIRA [Suspect]
     Indication: RHEUMATOID ARTHRITIS
     Route: 058
     Dates: start: 20060201, end: 20070424
  2. LEFLUNOMIDE [Concomitant]
     Indication: RHEUMATOID ARTHRITIS
     Route: 048
     Dates: start: 20020101, end: 20020501
  3. LEFLUNOMIDE [Concomitant]
  4. SULFASALAZINE [Concomitant]
     Indication: RHEUMATOID ARTHRITIS
     Route: 048
     Dates: start: 20020501, end: 20020501
  5. HYDROCHLOROQUINE [Concomitant]
     Indication: RHEUMATOID ARTHRITIS
     Route: 048
     Dates: start: 20020501, end: 20040701
  6. CYCLOSPORINE [Concomitant]
     Indication: RHEUMATOID ARTHRITIS
     Dates: start: 20020601, end: 20060201
  7. PREDNISOLONE [Concomitant]
     Indication: RHEUMATOID ARTHRITIS
  8. PANTOPRAZOLE [Concomitant]
     Indication: DRUG USE FOR UNKNOWN INDICATION
  9. ALENDRONAT 70 [Concomitant]
     Indication: DRUG USE FOR UNKNOWN INDICATION
  10. GOLD [Concomitant]
     Indication: DRUG USE FOR UNKNOWN INDICATION
  11. AM [Concomitant]
     Indication: DRUG USE FOR UNKNOWN INDICATION
  12. AM [Concomitant]
  13. AM [Concomitant]

REACTIONS (8)
  - DEHYDRATION [None]
  - FATIGUE [None]
  - GASTROENTERITIS [None]
  - GENERAL PHYSICAL HEALTH DETERIORATION [None]
  - INFLAMMATION [None]
  - PAIN [None]
  - PANCOAST'S TUMOUR [None]
  - WEIGHT DECREASED [None]
